FAERS Safety Report 13950218 (Version 13)
Quarter: 2023Q2

REPORT INFORMATION
  Report Type: Spontaneous
  Country: PL (occurrence: PL)
  Receive Date: 20170908
  Receipt Date: 20230615
  Transmission Date: 20230721
  Serious: Yes (Life-Threatening, Hospitalization, Disabling, Other)
  Sender: FDA-Public Use
  Company Number: PL-TEVA-803404ISR

PATIENT
  Age: 50 Year
  Sex: Female

DRUGS (32)
  1. MELOXICAM [Suspect]
     Active Substance: MELOXICAM
     Indication: Arthralgia
     Dosage: (BEDTIME), TRAMADOL IN COMBINATION WITH MELOXICAM, FOR ABOUT TWO YEARS AGO
     Route: 048
  2. MELOXICAM [Suspect]
     Active Substance: MELOXICAM
     Indication: Osteoarthritis
     Route: 065
  3. PERINDOPRIL [Suspect]
     Active Substance: PERINDOPRIL
     Indication: Suicide attempt
     Route: 048
  4. PERINDOPRIL [Suspect]
     Active Substance: PERINDOPRIL
     Indication: Hypertension
     Route: 065
  5. ATORVASTATIN [Suspect]
     Active Substance: ATORVASTATIN
     Indication: Hypercholesterolaemia
     Dosage: 10 MILLIGRAM DAILY; AT BEDTIME.
     Route: 048
  6. ATORVASTATIN [Suspect]
     Active Substance: ATORVASTATIN
     Route: 065
  7. SERTRALINE [Suspect]
     Active Substance: SERTRALINE HYDROCHLORIDE
     Indication: Depression
     Dosage: 50 MILLIGRAM DAILY; AM, IN THE MORNING (50 MG,1 IN 1 D)
     Route: 048
  8. SERTRALINE [Suspect]
     Active Substance: SERTRALINE HYDROCHLORIDE
     Indication: Depressed mood
     Dosage: 50 MILLIGRAM DAILY; 50 MG (50 MG,1 IN 1 D)
     Route: 065
  9. ZOLPIDEM [Suspect]
     Active Substance: ZOLPIDEM TARTRATE
     Indication: Depression
     Dosage: 10 MILLIGRAM DAILY; BEFORE BED TIME, DRUG NO LONG, (10 MG,1 IN 1 D)
     Route: 048
  10. ZOLPIDEM [Suspect]
     Active Substance: ZOLPIDEM TARTRATE
     Indication: Depressed mood
  11. ZOLPIDEM [Suspect]
     Active Substance: ZOLPIDEM TARTRATE
     Indication: Sleep disorder
  12. ESCITALOPRAM [Suspect]
     Active Substance: ESCITALOPRAM OXALATE
     Indication: Depression
     Dosage: DOCTOR SWITCHED THE PATIENT FROM SERTRALINE TO ESCITALOPRAM OXALATE (10 MG), BEFORE SLEEPING, AT BED
     Route: 048
  13. ESCITALOPRAM [Suspect]
     Active Substance: ESCITALOPRAM OXALATE
     Indication: Affective disorder
     Dosage: DOCTOR SWITCHED PATIENT FROM SERTRALINE TO ESCITALOPRAM OXALATE
     Route: 065
  14. ESCITALOPRAM [Suspect]
     Active Substance: ESCITALOPRAM OXALATE
     Indication: Insomnia
  15. DOXEPIN [Suspect]
     Active Substance: DOXEPIN
     Indication: Depression
     Dosage: 2.5 MILLIGRAM DAILY; AT NIGHT
     Route: 048
  16. DOXEPIN [Suspect]
     Active Substance: DOXEPIN
     Indication: Depressed mood
     Route: 065
  17. DOXEPIN [Suspect]
     Active Substance: DOXEPIN
     Indication: Affective disorder
  18. BISOPROLOL [Suspect]
     Active Substance: BISOPROLOL
     Indication: Product used for unknown indication
     Dosage: 2.5 MILLIGRAM DAILY;
     Route: 048
  19. TRAMADOL [Suspect]
     Active Substance: TRAMADOL
     Indication: Arthralgia
     Dosage: (BEDTIME), TRAMADOL IN COMBINATION WITH MELOXICAM FOR ABOUT TWO YEARS AGO
     Route: 048
  20. TRAMADOL [Suspect]
     Active Substance: TRAMADOL
     Indication: Osteoarthritis
  21. TRAMADOL [Suspect]
     Active Substance: TRAMADOL
     Indication: Analgesic therapy
  22. TRAMADOL [Suspect]
     Active Substance: TRAMADOL
     Indication: Arthralgia
  23. CLARITHROMYCIN [Suspect]
     Active Substance: CLARITHROMYCIN
     Indication: Tinnitus
     Dosage: (BEDTIME), TOTAL DRUG DURATION: 2 X 10 DAYS, UNKNOWN DOSE DAILY
     Route: 048
  24. CLARITHROMYCIN [Suspect]
     Active Substance: CLARITHROMYCIN
     Dosage: (BEDTIME), TOTAL DRUG DURATION: 2 X 10 DAYS, UNKNOWN DOSE DAILY (250 MG)
     Route: 048
  25. ATORVASTATIN CALCIUM [Suspect]
     Active Substance: ATORVASTATIN CALCIUM
     Indication: Suicide attempt
     Route: 065
  26. ZOLPIDEM TARTRATE [Suspect]
     Active Substance: ZOLPIDEM TARTRATE
     Indication: Depression
     Dosage: 10 MILLIGRAM DAILY; 10 MILLIGRAM QD HS AT BEDTIME
     Route: 048
  27. ZOLPIDEM TARTRATE [Suspect]
     Active Substance: ZOLPIDEM TARTRATE
     Indication: Sleep disorder
  28. BISOPROLOL FUMARATE [Suspect]
     Active Substance: BISOPROLOL FUMARATE
     Indication: Suicide attempt
     Route: 065
  29. MELOXICAM [Suspect]
     Active Substance: MELOXICAM
     Indication: Arthralgia
     Dosage: DAILY, TRAMADOL IN COMBINATION WITH MELOXICAM, FOR ABOUT TWO YEARS AGO
  30. MELOXICAM [Suspect]
     Active Substance: MELOXICAM
     Indication: Osteoarthritis
  31. ATORVASTATIN [Concomitant]
     Active Substance: ATORVASTATIN
     Indication: Hypercholesterolaemia
     Route: 048
  32. PERINDOPRIL [Concomitant]
     Active Substance: PERINDOPRIL
     Indication: Product used for unknown indication
     Route: 065

REACTIONS (15)
  - Tinnitus [Recovering/Resolving]
  - Insomnia [Recovering/Resolving]
  - Affective disorder [Recovering/Resolving]
  - Impaired work ability [Recovered/Resolved]
  - Loss of consciousness [Recovered/Resolved]
  - Loss of personal independence in daily activities [Recovered/Resolved]
  - Intentional overdose [Unknown]
  - Intentional product misuse [Recovering/Resolving]
  - Overdose [Recovered/Resolved]
  - Drug ineffective [Unknown]
  - Drug abuse [Unknown]
  - Condition aggravated [Unknown]
  - Depression [Recovering/Resolving]
  - Product use in unapproved indication [Recovered/Resolved]
  - Suicide attempt [Recovered/Resolved]
